FAERS Safety Report 14820314 (Version 2)
Quarter: 2018Q3

REPORT INFORMATION
  Report Type: Report from Study
  Country: IT (occurrence: IT)
  Receive Date: 20180427
  Receipt Date: 20180702
  Transmission Date: 20181010
  Serious: Yes (Hospitalization, Other)
  Sender: FDA-Public Use
  Company Number: PHHY2018IT073596

PATIENT
  Age: 66 Year
  Sex: Female

DRUGS (6)
  1. RAMIPRIL RATIOPHARM [Concomitant]
     Active Substance: RAMIPRIL
     Indication: PRODUCT USED FOR UNKNOWN INDICATION
     Dosage: 1 DF, UNK
     Route: 048
  2. DIBASE [Concomitant]
     Active Substance: CHOLECALCIFEROL
     Indication: PRODUCT USED FOR UNKNOWN INDICATION
     Route: 048
  3. CATAFAST [Suspect]
     Active Substance: DICLOFENAC POTASSIUM
     Indication: HERNIA
     Dosage: 50 MG, UNK (COATED TABLET)
     Route: 048
  4. TACHIDOL [Suspect]
     Active Substance: ACETAMINOPHEN\CODEINE PHOSPHATE
     Indication: BACK PAIN
     Route: 048
  5. OMEPRAZEN [Concomitant]
     Active Substance: OMEPRAZOLE
     Indication: PRODUCT USED FOR UNKNOWN INDICATION
     Dosage: 1 DF, UNK
     Route: 048
  6. METOPROLOLO DOC [Concomitant]
     Indication: PRODUCT USED FOR UNKNOWN INDICATION
     Dosage: 0.5 DF, UNK
     Route: 048

REACTIONS (4)
  - Presyncope [Recovered/Resolved]
  - Hyperbilirubinaemia [Recovered/Resolved]
  - Abdominal pain upper [Recovered/Resolved]
  - Transaminases abnormal [Recovered/Resolved]

NARRATIVE: CASE EVENT DATE: 20160711
